FAERS Safety Report 9931469 (Version 3)
Quarter: 2015Q2

REPORT INFORMATION
  Report Type: Report from Study
  Country: US (occurrence: US)
  Receive Date: 20140228
  Receipt Date: 20150414
  Transmission Date: 20150821
  Serious: Yes (Hospitalization, Other)
  Sender: FDA-Public Use
  Company Number: US-ROCHE-1356845

PATIENT
  Age: 10 Year
  Sex: Female
  Weight: 26.3 kg

DRUGS (5)
  1. NUTROPIN AQ [Suspect]
     Active Substance: SOMATROPIN
     Indication: BODY HEIGHT BELOW NORMAL
     Route: 058
     Dates: start: 20120410
  2. NUTROPIN AQ [Suspect]
     Active Substance: SOMATROPIN
     Route: 065
     Dates: start: 20131202
  3. SYNTHROID [Concomitant]
     Active Substance: LEVOTHYROXINE SODIUM
     Route: 065
  4. SYNTHROID [Concomitant]
     Active Substance: LEVOTHYROXINE SODIUM
     Indication: HYPOTHYROIDISM
     Route: 048
     Dates: start: 20120612
  5. NUTROPIN AQ [Suspect]
     Active Substance: SOMATROPIN
     Indication: TURNER^S SYNDROME
     Route: 058

REACTIONS (7)
  - Incorrect dose administered [Unknown]
  - Fatigue [Unknown]
  - Hypoglycaemia [Unknown]
  - Diabetes mellitus [Unknown]
  - Hypertension [Not Recovered/Not Resolved]
  - Dry skin [Unknown]
  - Weight decreased [Unknown]

NARRATIVE: CASE EVENT DATE: 20130312
